FAERS Safety Report 5162647-7 (Version None)
Quarter: 2006Q4

REPORT INFORMATION
  Report Type: 
  Country: None (occurrence: None)
  Receive Date: 20061201
  Receipt Date: 20061016
  Transmission Date: 20070319
  Serious: Yes (Other)
  Sender: FDA-Public Use
  Company Number: PHFR2006IE03093

PATIENT
  Age: 36 Year
  Sex: Female

DRUGS (6)
  1. ZOPICLONE [Concomitant]
     Dosage: 7.5MG DAILY
     Route: 065
  2. CLOZARIL [Suspect]
     Indication: SCHIZOPHRENIA
     Dosage: 200MG MANE; 325 MG NOCTE
     Route: 048
     Dates: start: 20060224
  3. EPILIM [Concomitant]
     Dosage: 300 MG, BID
     Route: 048
  4. LAMICTAL [Concomitant]
     Dosage: 75 MG, BID
     Route: 048
  5. PROPRANOLOL [Concomitant]
     Dosage: 20 MG, BID
  6. DIAZEPAM [Concomitant]
     Dosage: 2MG-5MG/5ML
     Route: 065

REACTIONS (7)
  - BALANCE DISORDER [None]
  - BLOOD CREATINE PHOSPHOKINASE INCREASED [None]
  - COORDINATION ABNORMAL [None]
  - DROOLING [None]
  - DYSARTHRIA [None]
  - MUSCULAR WEAKNESS [None]
  - TRANSIENT ISCHAEMIC ATTACK [None]
